FAERS Safety Report 6797368-8 (Version None)
Quarter: 2010Q2

REPORT INFORMATION
  Report Type: 
  Country: None (occurrence: None)
  Receive Date: 20100622
  Receipt Date: 20100616
  Transmission Date: 20101027
  Serious: Yes (Other)
  Sender: FDA-Public Use
  Company Number: 2010SP028999

PATIENT
  Age: 29 Year
  Sex: Female

DRUGS (1)
  1. DESOGESTREL AND ETHINYL ESTRADIOL [Suspect]
     Indication: CONTRACEPTION
     Dosage: 1 DF
     Dates: start: 20010101, end: 20100520

REACTIONS (5)
  - BRONCHITIS [None]
  - ERYTHEMA NODOSUM [None]
  - LYMPHADENOPATHY [None]
  - OEDEMA PERIPHERAL [None]
  - RASH PAPULAR [None]
